FAERS Safety Report 14345357 (Version 1)
Quarter: 2017Q4

REPORT INFORMATION
  Report Type: Spontaneous
  Country: US (occurrence: US)
  Receive Date: 20171230
  Receipt Date: 20171230
  Transmission Date: 20180321
  Serious: No
  Sender: FDA-Public Use
  Company Number: None

PATIENT
  Age: 47 Year
  Sex: Female

DRUGS (1)
  1. OPSUMIT [Suspect]
     Active Substance: MACITENTAN
     Indication: PULMONARY ARTERIAL HYPERTENSION
     Route: 048
     Dates: start: 20170322

REACTIONS (11)
  - Chest discomfort [None]
  - Pyrexia [None]
  - Influenza [None]
  - Dyspnoea [None]
  - Drug effect incomplete [None]
  - Peripheral swelling [None]
  - Cough [None]
  - Chills [None]
  - Pulmonary congestion [None]
  - Rhinorrhoea [None]
  - Productive cough [None]

NARRATIVE: CASE EVENT DATE: 20171228
